FAERS Safety Report 5303030-0 (Version None)
Quarter: 2007Q2

REPORT INFORMATION
  Report Type: 
  Country: None (occurrence: None)
  Receive Date: 20070413
  Receipt Date: 20070402
  Transmission Date: 20071010
  Serious: Yes (Hospitalization)
  Sender: FDA-Public Use
  Company Number: T200700319

PATIENT
  Age: 50 Year
  Sex: Female
  Weight: 68 kg

DRUGS (3)
  1. ULTRA-TECHNEKOW [Suspect]
     Indication: HEPATOBILIARY SCAN
     Dates: start: 20070307, end: 20070307
  2. CHOLETEC [Suspect]
     Indication: HEPATOBILIARY SCAN
     Dosage: SINGLE, INTRAVENOUS
     Route: 042
     Dates: start: 20070307, end: 20070307
  3. CHOLECYSTOKININ(PANCREOZYMIN) [Suspect]
     Indication: HEPATOBILIARY SCAN
     Dosage: SINGLE, INTRAVENOUS
     Route: 042
     Dates: start: 20070307, end: 20070307

REACTIONS (8)
  - ALANINE AMINOTRANSFERASE INCREASED [None]
  - ASPARTATE AMINOTRANSFERASE INCREASED [None]
  - CHILLS [None]
  - HEADACHE [None]
  - INCOHERENT [None]
  - NAUSEA [None]
  - VOMITING [None]
  - WHITE BLOOD CELL COUNT INCREASED [None]
